FAERS Safety Report 6108351-X (Version None)
Quarter: 2009Q1

REPORT INFORMATION
  Report Type: 
  Country: None (occurrence: None)
  Receive Date: 20090309
  Receipt Date: 20090220
  Transmission Date: 20090719
  Serious: Yes (Other)
  Sender: FDA-Public Use
  Company Number: BR-PFIZER INC-2009179030

PATIENT

DRUGS (1)
  1. VIAGRA [Suspect]
     Indication: ERECTILE DYSFUNCTION
     Dosage: UNK
     Dates: end: 20090201

REACTIONS (3)
  - DIZZINESS [None]
  - MUSCLE STRAIN [None]
  - MUSCULAR WEAKNESS [None]
